FAERS Safety Report 18389322 (Version 1)
Quarter: 2020Q4

REPORT INFORMATION
  Report Type: Spontaneous
  Country: FR (occurrence: FR)
  Receive Date: 20201016
  Receipt Date: 20201016
  Transmission Date: 20210114
  Serious: Yes (Hospitalization)
  Sender: FDA-Public Use
  Company Number: FR-ASTRAZENECA-2020SF32490

PATIENT
  Age: 64 Year
  Sex: Male

DRUGS (2)
  1. CANDESARTAN CILEXETIL. [Concomitant]
     Active Substance: CANDESARTAN CILEXETIL
  2. ZOMIG [Suspect]
     Active Substance: ZOLMITRIPTAN
     Indication: HEADACHE
     Dosage: GRADUALLY INCREASING DOSAGE 2,5 MG
     Route: 048
     Dates: start: 1998, end: 202009

REACTIONS (1)
  - Coronary artery stenosis [Not Recovered/Not Resolved]

NARRATIVE: CASE EVENT DATE: 202009
